FAERS Safety Report 17512164 (Version 1)
Quarter: 2020Q1

REPORT INFORMATION
  Report Type: Spontaneous
  Country: US (occurrence: US)
  Receive Date: 20200306
  Receipt Date: 20200306
  Transmission Date: 20200409
  Serious: No
  Sender: FDA-Public Use
  Company Number: US-ELI_LILLY_AND_COMPANY-US202003003114

PATIENT
  Sex: Female

DRUGS (10)
  1. BASAGLAR [Suspect]
     Active Substance: INSULIN GLARGINE
     Indication: GESTATIONAL DIABETES
     Dosage: 50 U, EACH EVENING
     Route: 058
     Dates: start: 20200220
  2. OMEPRAZOLE. [Concomitant]
     Active Substance: OMEPRAZOLE
     Indication: GASTROOESOPHAGEAL REFLUX DISEASE
     Dosage: 20 MG, EACH MORNING
  3. MAGNESIUM [Concomitant]
     Active Substance: MAGNESIUM
     Indication: RAYNAUD^S PHENOMENON
     Dosage: 250 MG, DAILY
  4. ASPIRIN (E.C.) [Concomitant]
     Active Substance: ASPIRIN
     Indication: PRE-ECLAMPSIA
     Dosage: 81 MG, DAILY
  5. VITAMINS NOS [Concomitant]
     Active Substance: VITAMINS
     Indication: PREGNANCY
     Dosage: 1 DOSAGE FORM, DAILY
  6. VITAMIN B6 [Concomitant]
     Active Substance: PYRIDOXINE HYDROCHLORIDE
     Indication: MORNING SICKNESS
     Dosage: 100 MG, DAILY
  7. MUCINEX [Concomitant]
     Active Substance: GUAIFENESIN
     Indication: RHINITIS
     Dosage: 600 MG, BID
  8. UNISOM SLEEPMELTS [Concomitant]
     Active Substance: DIPHENHYDRAMINE HYDROCHLORIDE
     Indication: MORNING SICKNESS
     Dosage: 12.5 MG, DAILY
  9. ZYRTEC [Concomitant]
     Active Substance: CETIRIZINE HYDROCHLORIDE
     Indication: RHINITIS
     Dosage: 1 DOSAGE FORM, DAILY
  10. NIFEDIPINE. [Concomitant]
     Active Substance: NIFEDIPINE
     Indication: HYPERTENSION
     Dosage: 60 MG, DAILY

REACTIONS (1)
  - Maternal exposure during pregnancy [Unknown]
